FAERS Safety Report 8420392-6 (Version None)
Quarter: 2012Q2

REPORT INFORMATION
  Report Type: 
  Country: None (occurrence: None)
  Receive Date: 20120607
  Receipt Date: 20120604
  Transmission Date: 20120825
  Serious: Yes (Life-Threatening, Hospitalization, Disabling)
  Sender: FDA-Public Use
  Company Number: US-MERCK-1206USA00782

PATIENT
  Sex: Female

DRUGS (1)
  1. ISENTRESS [Suspect]
     Indication: HIV INFECTION
     Route: 065
     Dates: start: 20111201

REACTIONS (5)
  - SEPSIS SYNDROME [None]
  - IMMUNE RECONSTITUTION SYNDROME [None]
  - ADVERSE EVENT [None]
  - PNEUMONIA [None]
  - INCORRECT ROUTE OF DRUG ADMINISTRATION [None]
